FAERS Safety Report 5900898-1 (Version None)
Quarter: 2008Q3

REPORT INFORMATION
  Report Type: 
  Country: None (occurrence: None)
  Receive Date: 20080929
  Receipt Date: 20080924
  Transmission Date: 20090109
  Serious: Yes (Death, Hospitalization, Other)
  Sender: FDA-Public Use
  Company Number: PHBS2008US05807

PATIENT
  Sex: Female

DRUGS (3)
  1. CYCLOSPORINE [Suspect]
     Indication: TRANSPLANT
     Dosage: 150 MG MORNING, 125 MG EVENING
     Route: 065
  2. CYCLOSPORINE [Interacting]
     Dosage: 75 MG, BID
     Route: 065
  3. POSACONAZOLE [Interacting]
     Indication: FUNGAL INFECTION
     Dosage: 800 MG/DAY

REACTIONS (6)
  - DEATH [None]
  - FUNGAL INFECTION [None]
  - IMMUNOSUPPRESSANT DRUG LEVEL INCREASED [None]
  - MENTAL STATUS CHANGES [None]
  - PANCYTOPENIA [None]
  - THROMBOTIC THROMBOCYTOPENIC PURPURA [None]
